FAERS Safety Report 4368584-X (Version None)
Quarter: 2004Q2

REPORT INFORMATION
  Report Type: 
  Country: None (occurrence: None)
  Receive Date: 20040528
  Receipt Date: 20040517
  Transmission Date: 20050107
  Serious: No
  Sender: FDA-Public Use
  Company Number: 2004SE02803

PATIENT
  Sex: Female

DRUGS (3)
  1. AMIAS [Suspect]
     Indication: HYPERTENSION
     Dosage: 4 MG PO
     Route: 048
     Dates: start: 20030501
  2. BENDROFLUAZIDE [Concomitant]
  3. CITALOPRAM [Concomitant]

REACTIONS (1)
  - HAEMOLYTIC ANAEMIA [None]
